FAERS Safety Report 9982645 (Version 1)
Quarter: 2014Q1

REPORT INFORMATION
  Report Type: Spontaneous
  Country: US (occurrence: None)
  Receive Date: 20140128
  Receipt Date: 20140128
  Transmission Date: 20141002
  Serious: Yes (Life-Threatening)
  Sender: FDA-Public Use
  Company Number: A-NJ2013-82999

PATIENT
  Age: 62 Year
  Sex: Male

DRUGS (1)
  1. TRACLEER (BOSENTAN) TABLET [Suspect]
     Indication: PRODUCT USED FOR UNKNOWN INDICATION
     Route: 048
     Dates: start: 20130425, end: 20130505

REACTIONS (3)
  - Dyspnoea [None]
  - Swelling [None]
  - Oedema peripheral [None]
